FAERS Safety Report 13257635 (Version 3)
Quarter: 2018Q1

REPORT INFORMATION
  Report Type: Report from Study
  Country: FI (occurrence: FI)
  Receive Date: 20170221
  Receipt Date: 20180131
  Transmission Date: 20180508
  Serious: Yes (Other)
  Sender: FDA-Public Use
  Company Number: FI-MYLANLABS-2017M1008874

PATIENT
  Age: 24 Year
  Sex: Male

DRUGS (3)
  1. LEPONEX [Suspect]
     Active Substance: CLOZAPINE
     Indication: SCHIZOPHRENIA
     Dosage: 600 MG, QD
     Dates: start: 20160316, end: 20160615
  2. LEPONEX [Suspect]
     Active Substance: CLOZAPINE
     Dosage: 350 MG, UNK
     Dates: start: 20160922, end: 20161207
  3. LEPONEX [Suspect]
     Active Substance: CLOZAPINE
     Dosage: UNK
     Dates: start: 20161210, end: 20161212

REACTIONS (6)
  - Heart rate increased [Unknown]
  - Neutrophil count decreased [Recovered/Resolved]
  - Urinary incontinence [Unknown]
  - Mental impairment [Unknown]
  - Salivary hypersecretion [Unknown]
  - White blood cell count decreased [Recovered/Resolved]

NARRATIVE: CASE EVENT DATE: 2016
